FAERS Safety Report 17823117 (Version 1)
Quarter: 2020Q2

REPORT INFORMATION
  Report Type: Spontaneous
  Country: FR (occurrence: FR)
  Receive Date: 20200526
  Receipt Date: 20200526
  Transmission Date: 20200714
  Serious: Yes (Other)
  Sender: FDA-Public Use
  Company Number: NVSC2020FR141324

PATIENT
  Age: 35 Year
  Sex: Female

DRUGS (1)
  1. METHYLPREDNISOLONE. [Suspect]
     Active Substance: METHYLPREDNISOLONE
     Indication: ACUTE DISSEMINATED ENCEPHALOMYELITIS
     Dosage: UNK, HIGH DOSE
     Route: 042

REACTIONS (4)
  - Condition aggravated [Unknown]
  - Altered state of consciousness [Recovering/Resolving]
  - Product use in unapproved indication [Unknown]
  - Therapy non-responder [Unknown]
